FAERS Safety Report 7602143-8 (Version None)
Quarter: 2011Q3

REPORT INFORMATION
  Report Type: 
  Country: None (occurrence: None)
  Receive Date: 20110711
  Receipt Date: 20110701
  Transmission Date: 20111222
  Serious: Yes (Death, Other)
  Sender: FDA-Public Use
  Company Number: JP-AMGEN-JPNCT2011034881

PATIENT
  Age: 66 Year
  Sex: Female
  Weight: 42 kg

DRUGS (18)
  1. ALPRAZOLAM [Concomitant]
     Dosage: UNK
     Route: 048
  2. MS CONTIN [Concomitant]
     Dosage: UNK
     Route: 048
  3. MAZULENIN MARUISHI [Concomitant]
     Dosage: UNK
     Route: 049
  4. LANSOPRAZOLE [Concomitant]
     Dosage: UNK
     Route: 048
  5. HIRUDOID [Concomitant]
     Dosage: UNK
     Route: 062
  6. DOGMATYL [Concomitant]
     Dosage: UNK
     Route: 048
  7. DEPAS [Concomitant]
     Dosage: UNK
     Route: 048
  8. OLOPATADINE HCL [Concomitant]
     Dosage: UNK
     Route: 048
  9. LOCOID [Concomitant]
     Dosage: UNK
     Route: 062
  10. LEXOTAN [Concomitant]
     Dosage: UNK
     Route: 048
  11. CLOBETASOL PROPIONATE [Concomitant]
     Dosage: UNK
     Route: 062
  12. LOXOPROFEN [Concomitant]
     Dosage: UNK
     Route: 048
  13. PANITUMUMAB [Suspect]
     Indication: COLORECTAL CANCER
     Dosage: 6 MG/KG, Q2WK
     Route: 041
     Dates: start: 20100816, end: 20101227
  14. PANITUMUMAB [Suspect]
     Dosage: 4.8 MG/KG, Q2WK
     Route: 041
     Dates: start: 20110131, end: 20110606
  15. FERROUS SULFATE TAB [Concomitant]
     Dosage: UNK
     Route: 048
  16. LOPERAMIDE HCL [Concomitant]
     Dosage: UNK
     Route: 048
  17. POLARAMINE [Concomitant]
     Dosage: UNK
     Route: 048
  18. DORIPENEM MONOHYDRATE [Concomitant]
     Dosage: UNK
     Route: 042

REACTIONS (11)
  - DIARRHOEA [None]
  - PRURITUS [None]
  - PARONYCHIA [None]
  - DERMATITIS ACNEIFORM [None]
  - COLORECTAL CANCER [None]
  - HYPOCALCAEMIA [None]
  - HYPOMAGNESAEMIA [None]
  - STOMATITIS [None]
  - LUNG ABSCESS [None]
  - PALMAR-PLANTAR ERYTHRODYSAESTHESIA SYNDROME [None]
  - DRY SKIN [None]
